FAERS Safety Report 4518834-1 (Version None)
Quarter: 2004Q4

REPORT INFORMATION
  Report Type: 
  Country: None (occurrence: None)
  Receive Date: 20041206
  Receipt Date: 20041122
  Transmission Date: 20050328
  Serious: Yes (Life-Threatening, Hospitalization, Other)
  Sender: FDA-Public Use
  Company Number: GB-JNJFOC-20041100499

PATIENT
  Sex: Male
  Weight: 83.6 kg

DRUGS (4)
  1. REMICADE [Suspect]
     Route: 042
  2. REMICADE [Suspect]
     Indication: RHEUMATOID ARTHRITIS
     Route: 042
  3. ZOPICLONE [Suspect]
     Indication: INSOMNIA
     Route: 049
  4. METHOTREXATE [Concomitant]
     Route: 058

REACTIONS (7)
  - ARTHRITIS BACTERIAL [None]
  - BRONCHOSPASM [None]
  - FACE OEDEMA [None]
  - OEDEMA PERIPHERAL [None]
  - RASH ERYTHEMATOUS [None]
  - RASH GENERALISED [None]
  - SLEEP DISORDER [None]
